FAERS Safety Report 8003446-8 (Version None)
Quarter: 2011Q4

REPORT INFORMATION
  Report Type: 
  Country: None (occurrence: None)
  Receive Date: 20111222
  Receipt Date: 20111222
  Transmission Date: 20120403
  Serious: No
  Sender: FDA-Public Use
  Company Number: None

PATIENT
  Age: 63 Year
  Sex: Female
  Weight: 90.718 kg

DRUGS (6)
  1. LISINOPRIL [Suspect]
     Indication: RENAL DISORDER
     Dosage: 10MG
     Route: 048
     Dates: start: 20091101, end: 20111101
  2. CITALOPRAM HYDROBROMIDE [Concomitant]
     Route: 048
  3. GLIPIZIDE [Concomitant]
  4. SIMVASTATIN [Concomitant]
  5. LIPITOR [Concomitant]
  6. METFORMIN HCL [Concomitant]

REACTIONS (1)
  - COUGH [None]
